FAERS Safety Report 6197278-3 (Version None)
Quarter: 2009Q2

REPORT INFORMATION
  Report Type: 
  Country: None (occurrence: None)
  Receive Date: 20090521
  Receipt Date: 20090513
  Transmission Date: 20091009
  Serious: No
  Sender: FDA-Public Use
  Company Number: US-JNJFOC-20090502536

PATIENT
  Sex: Male
  Weight: 90.72 kg

DRUGS (3)
  1. FENTANYL TRANSDERMAL SYSTEM [Suspect]
     Indication: MUSCULOSKELETAL PAIN
     Route: 062
  2. FENTANYL TRANSDERMAL SYSTEM [Suspect]
     Indication: BACK PAIN
     Route: 062
  3. MANY OTHER UNSPECIFIED MEDICATIONS [Concomitant]

REACTIONS (1)
  - DRUG ADMINISTERED AT INAPPROPRIATE SITE [None]
